FAERS Safety Report 18715744 (Version 2)
Quarter: 2021Q1

REPORT INFORMATION
  Report Type: Spontaneous
  Country: IN (occurrence: IN)
  Receive Date: 20210108
  Receipt Date: 20210212
  Transmission Date: 20210419
  Serious: Yes (Life-Threatening, Hospitalization, Other)
  Sender: FDA-Public Use
  Company Number: IN-BAXTER-2021BAX000110

PATIENT
  Age: 32 Year
  Sex: Female

DRUGS (5)
  1. FENTANYL. [Suspect]
     Active Substance: FENTANYL
     Indication: EPIDURAL ANALGESIA
     Dosage: 2 UG/ML (EPIDURAL CATHETER WAS INSERTED USING 18G NEEDLE IN L3/L4 SPACE)
     Route: 008
  2. EPHEDRINE. [Suspect]
     Active Substance: EPHEDRINE
     Indication: HYPOTENSION
     Dosage: THREE BOLUS DOSES, EVERY 5 MINUTE
     Route: 040
  3. SODIUM CHLORIDE IP [Suspect]
     Active Substance: SODIUM CHLORIDE
     Indication: MEDICATION DILUTION
     Dosage: EVERY 5 MINUTE
     Route: 040
  4. BUPICAN HEAVY [Suspect]
     Active Substance: BUPIVACAINE HYDROCHLORIDE
     Indication: EPIDURAL ANALGESIA
     Dosage: 10 CC (EPIDURAL CATHETER WAS INSERTED USING 18G NEEDLE IN L3/L4 SPACE)
     Route: 008
  5. OXYGEN. [Concomitant]
     Active Substance: OXYGEN
     Indication: PRODUCT USED FOR UNKNOWN INDICATION
     Route: 055

REACTIONS (9)
  - Hypotension [Recovered/Resolved]
  - Vasoconstriction [Recovered/Resolved]
  - Ventricular extrasystoles [Recovered/Resolved]
  - Maternal exposure during delivery [Recovered/Resolved]
  - Stress cardiomyopathy [Recovered/Resolved]
  - Incorrect route of product administration [Recovered/Resolved]
  - Accidental exposure to product [Recovered/Resolved]
  - Ventricular hypokinesia [Recovered/Resolved]
  - Anaesthetic complication [Unknown]
